FAERS Safety Report 9643248 (Version 1)
Quarter: 2013Q4

REPORT INFORMATION
  Report Type: Spontaneous
  Country: US (occurrence: None)
  Receive Date: 20131022
  Receipt Date: 20131022
  Transmission Date: 20140711
  Serious: Yes (Other)
  Sender: FDA-Public Use
  Company Number: 2013P1020118

PATIENT
  Age: 62 Year
  Sex: Female

DRUGS (3)
  1. FORFIVO XL [Suspect]
     Indication: DEPRESSION
     Route: 048
     Dates: start: 20130904, end: 20130920
  2. HORMONE REPLACEMENT THERAPY (UNSPECIFIED) [Concomitant]
  3. ADDITIONAL UNSPECIFIED MDICATIONS [Concomitant]

REACTIONS (7)
  - Swollen tongue [None]
  - Pharyngeal oedema [None]
  - Local swelling [None]
  - Feeling abnormal [None]
  - Dysphonia [None]
  - Rash [None]
  - Product substitution issue [None]
